FAERS Safety Report 12050254 (Version 1)
Quarter: 2016Q1

REPORT INFORMATION
  Report Type: Spontaneous
  Country: US (occurrence: None)
  Receive Date: 20160208
  Receipt Date: 20160208
  Transmission Date: 20160526
  Serious: Yes (Other)
  Sender: FDA-Public Use
  Company Number: None

PATIENT
  Age: 5 Year
  Sex: Female
  Weight: 16.78 kg

DRUGS (2)
  1. AMOXICILLIN WEST-WARD PHARMACEUTICALS [Suspect]
     Active Substance: AMOXICILLIN
     Indication: SINUSITIS
     Route: 048
     Dates: start: 20160204, end: 20160204
  2. ZYRTEC [Concomitant]
     Active Substance: CETIRIZINE HYDROCHLORIDE

REACTIONS (3)
  - Reaction to drug excipients [None]
  - Product label confusion [None]
  - Urticaria [None]

NARRATIVE: CASE EVENT DATE: 20160204
